FAERS Safety Report 7375564-9 (Version None)
Quarter: 2011Q1

REPORT INFORMATION
  Report Type: 
  Country: None (occurrence: None)
  Receive Date: 20110325
  Receipt Date: 20110131
  Transmission Date: 20110831
  Serious: Yes (Disabling, Other)
  Sender: FDA-Public Use
  Company Number: US-BAYER-201036696NA

PATIENT
  Sex: Female

DRUGS (11)
  1. MULTI-VITAMIN [Concomitant]
     Route: 065
  2. ZOLOFT [Concomitant]
     Route: 048
  3. ZOLOFT [Concomitant]
     Route: 048
  4. MIRENA [Suspect]
     Indication: CONTRACEPTION
     Dosage: 20 MCG/24HR, CONT
     Route: 015
     Dates: start: 20090116, end: 20090923
  5. TRANXENE [Concomitant]
     Dosage: DAILY
     Route: 048
  6. ASCORBIC ACID [Concomitant]
     Route: 065
  7. PRASTERONE [Concomitant]
     Route: 065
  8. VITAMIN B COMPLEX CAP [Concomitant]
     Route: 065
  9. EVENING PRIMROSE OIL [Concomitant]
     Route: 065
  10. DIAMOX [Concomitant]
     Route: 065
  11. VITAMIN E [Concomitant]
     Route: 065

REACTIONS (22)
  - SEBORRHOEA [None]
  - BLINDNESS [None]
  - VISUAL FIELD DEFECT [None]
  - DIARRHOEA [None]
  - PAPILLOEDEMA [None]
  - HYPERHIDROSIS [None]
  - DISTURBANCE IN ATTENTION [None]
  - VISUAL IMPAIRMENT [None]
  - MOOD SWINGS [None]
  - ISCHAEMIC STROKE [None]
  - PHOTOPHOBIA [None]
  - DYSPNOEA [None]
  - TUNNEL VISION [None]
  - HYPOAESTHESIA [None]
  - VISUAL ACUITY REDUCED [None]
  - AMENORRHOEA [None]
  - MENTAL IMPAIRMENT [None]
  - HYPERSOMNIA [None]
  - HEADACHE [None]
  - DISORIENTATION [None]
  - OPTIC ISCHAEMIC NEUROPATHY [None]
  - CONVULSION [None]
